FAERS Safety Report 5818786-8 (Version None)
Quarter: 2008Q3

REPORT INFORMATION
  Report Type: 
  Country: None (occurrence: None)
  Receive Date: 20080723
  Receipt Date: 20080715
  Transmission Date: 20090109
  Serious: Yes (Hospitalization, Other)
  Sender: FDA-Public Use
  Company Number: AT-TYCO HEALTHCARE/MALLINCKRODT-T200801150

PATIENT

DRUGS (1)
  1. ANAFRANIL CAP [Suspect]
     Indication: MAJOR DEPRESSION
     Dosage: 75 MG, QD

REACTIONS (1)
  - ORGANISING PNEUMONIA [None]
